FAERS Safety Report 10482135 (Version 1)
Quarter: 2014Q3

REPORT INFORMATION
  Report Type: Spontaneous
  Country: IT (occurrence: IT)
  Receive Date: 20140929
  Receipt Date: 20140929
  Transmission Date: 20150326
  Serious: Yes (Other)
  Sender: FDA-Public Use
  Company Number: IT-TEVA-511435ISR

PATIENT
  Age: 85 Year
  Sex: Male

DRUGS (2)
  1. BICALUTAMIDE TEVA 50 MG [Suspect]
     Active Substance: BICALUTAMIDE
     Indication: PROSTATE CANCER METASTATIC
     Dosage: 50 MILLIGRAM DAILY;
     Route: 048
     Dates: start: 20140505, end: 20140715
  2. SAFEDEX [Suspect]
     Active Substance: BICALUTAMIDE
     Indication: PROSTATE CANCER METASTATIC
     Dosage: 50 MILLIGRAM DAILY;
     Route: 048
     Dates: start: 20091030

REACTIONS (8)
  - Pain [Recovering/Resolving]
  - Headache [Recovering/Resolving]
  - Nausea [Recovering/Resolving]
  - Prostatic specific antigen increased [Recovering/Resolving]
  - Somnolence [Recovering/Resolving]
  - Hyperglycaemia [Recovering/Resolving]
  - Abdominal distension [Recovering/Resolving]
  - Agitation [Recovering/Resolving]

NARRATIVE: CASE EVENT DATE: 20140630
